FAERS Safety Report 18069190 (Version 1)
Quarter: 2020Q3

REPORT INFORMATION
  Report Type: Spontaneous
  Country: US (occurrence: US)
  Receive Date: 20200725
  Receipt Date: 20200725
  Transmission Date: 20201103
  Serious: No
  Sender: FDA-Public Use
  Company Number: US-UNITED THERAPEUTICS-UNT-2020-011018

PATIENT
  Sex: Female

DRUGS (2)
  1. REMODULIN [Suspect]
     Active Substance: TREPROSTINIL
     Indication: PULMONARY ARTERIAL HYPERTENSION
     Dosage: UNK UNK, CONTINUING
     Route: 041
     Dates: start: 201909
  2. REMODULIN [Suspect]
     Active Substance: TREPROSTINIL
     Dosage: 0.166 ?G/KG, CONTINUING
     Route: 041

REACTIONS (2)
  - Wound [Unknown]
  - Injection site irritation [Unknown]
